FAERS Safety Report 6119872-8 (Version None)
Quarter: 2009Q1

REPORT INFORMATION
  Report Type: 
  Country: None (occurrence: None)
  Receive Date: 20090316
  Receipt Date: 20090304
  Transmission Date: 20090719
  Serious: Yes (Hospitalization)
  Sender: FDA-Public Use
  Company Number: ES-ROCHE-619303

PATIENT
  Age: 28 Year
  Sex: Female

DRUGS (2)
  1. PEGASYS [Suspect]
     Route: 058
     Dates: start: 20080111, end: 20080823
  2. COPEGUS [Suspect]
     Route: 048
     Dates: start: 20080111, end: 20080823

REACTIONS (1)
  - MYOPATHY [None]
